FAERS Safety Report 7772361-7 (Version None)
Quarter: 2011Q3

REPORT INFORMATION
  Report Type: 
  Country: None (occurrence: None)
  Receive Date: 20110922
  Receipt Date: 20110919
  Transmission Date: 20111222
  Serious: Yes (Hospitalization)
  Sender: FDA-Public Use
  Company Number: SE-TEVA-301776ISR

PATIENT
  Sex: Female

DRUGS (8)
  1. METHOTREXATE [Concomitant]
     Route: 048
  2. LEVOTHYROXINE SODIUM [Concomitant]
     Route: 048
  3. OXASCAND [Suspect]
     Indication: NEUROSIS
     Route: 048
     Dates: end: 20070327
  4. ZOLPIDEM TARTRATE [Concomitant]
     Route: 048
  5. CALCIUM CARBONATE [Concomitant]
     Route: 048
  6. ESCITALOPRAM [Concomitant]
     Route: 048
  7. OXYCONTIN [Concomitant]
     Route: 048
  8. OXYCODONE HCL [Concomitant]
     Route: 048

REACTIONS (2)
  - AMNESIA [None]
  - VIITH NERVE PARALYSIS [None]
